FAERS Safety Report 6577180-5 (Version None)
Quarter: 2010Q1

REPORT INFORMATION
  Report Type: 
  Country: None (occurrence: None)
  Receive Date: 20100210
  Receipt Date: 20100201
  Transmission Date: 20100710
  Serious: Yes (Other)
  Sender: FDA-Public Use
  Company Number: PHEH2010US01307

PATIENT
  Sex: Female
  Weight: 32.3 kg

DRUGS (3)
  1. EXJADE [Suspect]
     Indication: SICKLE CELL ANAEMIA
     Dosage: 1000 MG DAILY
     Route: 048
     Dates: start: 20090306, end: 20100126
  2. EXJADE [Suspect]
     Indication: IRON OVERLOAD
  3. ASPIRIN [Concomitant]
     Indication: MOYAMOYA DISEASE
     Dosage: 81 MG, UNK
     Route: 048
     Dates: start: 20070804

REACTIONS (2)
  - BACK PAIN [None]
  - SYNCOPE [None]
